FAERS Safety Report 19364416 (Version 1)
Quarter: 2021Q2

REPORT INFORMATION
  Report Type: Spontaneous
  Country: NP (occurrence: NP)
  Receive Date: 20210602
  Receipt Date: 20210602
  Transmission Date: 20210717
  Serious: Yes (Death, Hospitalization)
  Sender: FDA-Public Use
  Company Number: NP-LUPIN PHARMACEUTICALS INC.-2021-08272

PATIENT
  Age: 82 Year
  Sex: Female

DRUGS (5)
  1. PHENIRAMINE [Suspect]
     Active Substance: PHENIRAMINE
     Indication: ANAPHYLACTIC REACTION
     Dosage: UNK
     Route: 042
  2. HYDROCORTISONE. [Suspect]
     Active Substance: HYDROCORTISONE
     Indication: ANAPHYLACTIC REACTION
     Dosage: UNK (INTRAVENOUS BOLUS)
     Route: 042
  3. EPINEPHRINE. [Suspect]
     Active Substance: EPINEPHRINE
     Indication: ANAPHYLACTIC REACTION
     Dosage: 0.5 MILLIGRAM (1 MG/ML)
     Route: 030
  4. NORMAL SALINE [Suspect]
     Active Substance: SODIUM CHLORIDE
     Indication: BLOOD VOLUME EXPANSION
     Dosage: UNK
     Route: 065
  5. TILSET [Concomitant]
     Indication: VOMITING
     Dosage: 4 MILLIGRAM, SINGLE
     Route: 042

REACTIONS (1)
  - Drug ineffective [Fatal]
